FAERS Safety Report 20775507 (Version 1)
Quarter: 2022Q2

REPORT INFORMATION
  Report Type: Spontaneous
  Country: US (occurrence: None)
  Receive Date: 20220502
  Receipt Date: 20220502
  Transmission Date: 20220720
  Serious: Yes (Death, Hospitalization, Other)
  Sender: FDA-Public Use
  Company Number: None

PATIENT
  Age: 95 Year
  Sex: Male

DRUGS (10)
  1. PRECEDEX [Suspect]
     Active Substance: DEXMEDETOMIDINE HYDROCHLORIDE
     Dates: start: 20220312, end: 20220316
  2. ASPIRIN [Concomitant]
     Active Substance: ASPIRIN
  3. DILTIAZEM [Concomitant]
     Active Substance: DILTIAZEM
  4. pantoparazole [Concomitant]
  5. LASIX [Concomitant]
     Active Substance: FUROSEMIDE
  6. HEPARIN [Concomitant]
     Active Substance: HEPARIN SODIUM
  7. TAMSULOSIN [Concomitant]
     Active Substance: TAMSULOSIN
  8. METOPROLOL [Concomitant]
     Active Substance: METOPROLOL
  9. DEVICE [Concomitant]
     Active Substance: DEVICE
  10. METOLAZONE [Concomitant]
     Active Substance: METOLAZONE

REACTIONS (1)
  - Loss of consciousness [None]

NARRATIVE: CASE EVENT DATE: 20220312
